FAERS Safety Report 7992599-3 (Version None)
Quarter: 2011Q4

REPORT INFORMATION
  Report Type: 
  Country: None (occurrence: None)
  Receive Date: 20111219
  Receipt Date: 20111209
  Transmission Date: 20120403
  Serious: Yes (Hospitalization)
  Sender: FDA-Public Use
  Company Number: US-MPIJNJ-2011-05947

PATIENT
  Sex: Female
  Weight: 74.558 kg

DRUGS (8)
  1. LANTUS [Concomitant]
     Indication: DIABETES MELLITUS
     Dosage: 10 UNK, QD
     Dates: start: 20060101
  2. LENALIDOMIDE [Suspect]
     Indication: MANTLE CELL LYMPHOMA
     Dosage: 5 MG, CYCLIC
     Route: 048
     Dates: start: 20110926, end: 20111117
  3. CRESTOR [Concomitant]
     Indication: HYPERLIPIDAEMIA
     Dosage: 10 MG, QD
     Dates: start: 20100801
  4. LEVOTHYROXINE SODIUM [Concomitant]
     Indication: HYPOTHYROIDISM
     Dosage: 112 UG, UNK
     Dates: start: 20060101
  5. XANAX [Concomitant]
     Indication: ANXIETY
     Dosage: UNK MG, PRN
     Dates: start: 20020101
  6. VELCADE [Suspect]
     Indication: MANTLE CELL LYMPHOMA
     Dosage: 2.37 MG, CYCLIC
     Route: 042
     Dates: start: 20110926, end: 20111107
  7. RITUXIMAB [Suspect]
     Indication: MANTLE CELL LYMPHOMA
     Dosage: 683 MG, CYCLIC
     Route: 042
     Dates: start: 20110926, end: 20111117
  8. CLONIDINE [Concomitant]
     Indication: HYPERTENSION
     Dosage: 0.1 MG, UNK
     Dates: start: 20110501

REACTIONS (4)
  - PETECHIAE [None]
  - THROMBOCYTOPENIA [None]
  - PYELONEPHRITIS [None]
  - PYREXIA [None]
